FAERS Safety Report 8515235-6 (Version None)
Quarter: 2012Q3

REPORT INFORMATION
  Report Type: 
  Country: None (occurrence: None)
  Receive Date: 20120705
  Receipt Date: 20120621
  Transmission Date: 20120928
  Serious: Yes (Other)
  Sender: FDA-Public Use
  Company Number: 2011MA002965

PATIENT
  Sex: Female

DRUGS (18)
  1. CYCLOBENAZPRINE [Concomitant]
  2. BYETTA [Concomitant]
  3. SPIRIVA [Concomitant]
  4. FEXOFENADINE [Concomitant]
  5. METOCLOPRAMIDE [Suspect]
     Indication: PRODUCT USED FOR UNKNOWN INDICATION
     Dosage: 10 MG;30 MIN AC + HS;PO
     Route: 048
     Dates: start: 20080401, end: 20100601
  6. METFORMIN HYDROCHLORIDE [Concomitant]
  7. PROVIGIL [Concomitant]
  8. OXYCODONE HCL AND ACETAMINOPHEN [Concomitant]
  9. LYRICA [Concomitant]
  10. ALPRAZOLAM [Concomitant]
  11. PANTOPRAZOLE [Concomitant]
  12. PROMETHEGAN [Concomitant]
  13. AVELOX [Concomitant]
  14. AVAPRO [Concomitant]
  15. ONDANSETRON [Concomitant]
  16. LUNESTA [Concomitant]
  17. FENTANYL [Concomitant]
  18. PRISTIQ [Concomitant]

REACTIONS (8)
  - TARDIVE DYSKINESIA [None]
  - DYSKINESIA [None]
  - EMOTIONAL DISORDER [None]
  - AKATHISIA [None]
  - DYSTONIA [None]
  - EXTRAPYRAMIDAL DISORDER [None]
  - TREMOR [None]
  - ECONOMIC PROBLEM [None]
